FAERS Safety Report 15088652 (Version 1)
Quarter: 2018Q2

REPORT INFORMATION
  Report Type: Spontaneous
  Country: FR (occurrence: FR)
  Receive Date: 20180629
  Receipt Date: 20180629
  Transmission Date: 20180711
  Serious: Yes (Death)
  Sender: FDA-Public Use
  Company Number: FR-ACCORD-068807

PATIENT
  Age: 58 Year
  Sex: Male
  Weight: 54 kg

DRUGS (3)
  1. IRINOTECAN FRESENIUS [Suspect]
     Active Substance: IRINOTECAN
     Indication: PANCREATIC CARCINOMA METASTATIC
     Route: 041
     Dates: start: 20170706
  2. OXALIPLATIN ACCORD [Suspect]
     Active Substance: OXALIPLATIN
     Indication: PANCREATIC CARCINOMA METASTATIC
     Route: 041
     Dates: start: 20170706
  3. FLUOROURACIL ACCORD [Suspect]
     Active Substance: FLUOROURACIL
     Indication: PANCREATIC CARCINOMA METASTATIC
     Route: 041
     Dates: start: 20170706

REACTIONS (7)
  - Hypotension [Fatal]
  - Hepatic failure [Fatal]
  - Dehydration [Fatal]
  - Vomiting [Fatal]
  - Multiple organ dysfunction syndrome [Fatal]
  - Coma [Fatal]
  - Hypoglycaemia [Fatal]

NARRATIVE: CASE EVENT DATE: 201707
